FAERS Safety Report 4451250-X (Version None)
Quarter: 2004Q3

REPORT INFORMATION
  Report Type: 
  Country: None (occurrence: None)
  Receive Date: 20040913
  Receipt Date: 20040714
  Transmission Date: 20050211
  Serious: No
  Sender: FDA-Public Use
  Company Number: 2004-BP-05628BP

PATIENT
  Age: 74 Year
  Sex: Male

DRUGS (11)
  1. SPIRIVA [Suspect]
     Indication: CHRONIC OBSTRUCTIVE AIRWAYS DISEASE
     Dosage: 18 MCG (18 MCG), IH
     Route: 055
     Dates: start: 20040707, end: 20040712
  2. THEO-DUR [Concomitant]
  3. ADVAIR (SERETIDE MITE) [Concomitant]
  4. COMBIVENT [Concomitant]
  5. DILTIAZEM [Concomitant]
  6. WARFARIN (WARFARIN) [Concomitant]
  7. PLAVIX [Concomitant]
  8. ZANTAC [Concomitant]
  9. ALLOPURINOL [Concomitant]
  10. SYNTHROID [Concomitant]
  11. NPH INSULIN [Concomitant]

REACTIONS (2)
  - ASTHENIA [None]
  - SOMNOLENCE [None]
